FAERS Safety Report 4811801-X (Version None)
Quarter: 2005Q4

REPORT INFORMATION
  Report Type: 
  Country: None (occurrence: None)
  Receive Date: 20051027
  Receipt Date: 20051027
  Transmission Date: 20060501
  Serious: Yes (Life-Threatening, Hospitalization)
  Sender: FDA-Public Use
  Company Number: None

PATIENT
  Age: 57 Year
  Weight: 96.6162 kg

DRUGS (1)
  1. HCTZ/LISINOPRIL   25MG/20MG [Suspect]
     Indication: HYPERTENSION
     Dosage: 25MG/20MG  QD PO
     Route: 048
     Dates: start: 20050620, end: 20050820

REACTIONS (2)
  - ANGIONEUROTIC OEDEMA [None]
  - NASAL OEDEMA [None]
